FAERS Safety Report 10302235 (Version 2)
Quarter: 2014Q3

REPORT INFORMATION
  Report Type: Spontaneous
  Country: US (occurrence: None)
  Receive Date: 20140709
  Receipt Date: 20140814
  Transmission Date: 20150326
  Serious: Yes (Death, Other)
  Sender: FDA-Public Use
  Company Number: 2014SGN00780

PATIENT
  Age: 45 Year
  Sex: Female
  Weight: 102.4 kg

DRUGS (18)
  1. ZANTAC [Concomitant]
     Active Substance: RANITIDINE HYDROCHLORIDE
  2. ATIVAN [Concomitant]
     Active Substance: LORAZEPAM
  3. TRAMADOL (TRAMADOL HYDROCHLORIDE) [Concomitant]
     Active Substance: TRAMADOL HYDROCHLORIDE
  4. ALBUTEROL (SALBUTAMOL SULFATE) [Concomitant]
  5. CIPRO (CIPROFLOXACIN HYDROCHLORIDE) [Concomitant]
  6. ADCETRIS [Suspect]
     Active Substance: BRENTUXIMAB VEDOTIN
     Indication: PRODUCT USED FOR UNKNOWN INDICATION
  7. POTASSIUM (POTASSIUM CHLORIDE) [Concomitant]
  8. PRILOSEC (OMEPRAZOLE) [Concomitant]
     Active Substance: OMEPRAZOLE MAGNESIUM
  9. COLACE [Concomitant]
     Active Substance: DOCUSATE SODIUM
  10. ALLOPURINOL (ALLOPURINOL) [Concomitant]
     Active Substance: ALLOPURINOL
  11. MAGNESIUM OXIDE (MAGNESIUM OXIDE) [Concomitant]
     Active Substance: MAGNESIUM OXIDE
  12. ZOFRAN (ONDANSETRON HYDROCHLORIDE) [Concomitant]
  13. MS CONTIN (MORPHINE SULFATE) [Concomitant]
  14. LANOXIN [Concomitant]
     Active Substance: DIGOXIN
  15. ADCETRIS [Suspect]
     Active Substance: BRENTUXIMAB VEDOTIN
     Indication: HODGKIN^S DISEASE
  16. LASIX [Concomitant]
     Active Substance: FUROSEMIDE
  17. LIPITOR [Concomitant]
     Active Substance: ATORVASTATIN CALCIUM
  18. TUSSIONEX (HYDROCODONE BITARTRATE, PHENYLTOLOXAMINE) [Concomitant]

REACTIONS (3)
  - Multi-organ failure [None]
  - Sepsis [None]
  - Cardio-respiratory arrest [None]

NARRATIVE: CASE EVENT DATE: 20140621
